FAERS Safety Report 9477896 (Version 2)
Quarter: 2013Q3

REPORT INFORMATION
  Report Type: Spontaneous
  Country: US (occurrence: US)
  Receive Date: 20130827
  Receipt Date: 20130827
  Transmission Date: 20140515
  Serious: Yes (Other)
  Sender: FDA-Public Use
  Company Number: US-AMGEN-USASP2013037494

PATIENT
  Age: 77 Year
  Sex: Female
  Weight: 62.13 kg

DRUGS (1)
  1. ENBREL [Suspect]
     Indication: RHEUMATOID ARTHRITIS
     Dosage: 50 MG, QWK
     Route: 065
     Dates: start: 20120927

REACTIONS (5)
  - Lymphoma [Not Recovered/Not Resolved]
  - Bone cancer [Not Recovered/Not Resolved]
  - Protein total [Not Recovered/Not Resolved]
  - Paraproteinaemia [Unknown]
  - Osteoarthritis [Unknown]
